FAERS Safety Report 9531119 (Version 1)
Quarter: 2013Q2

REPORT INFORMATION
  Report Type: Spontaneous
  Country: US (occurrence: None)
  Receive Date: 20130418
  Receipt Date: 20130418
  Transmission Date: 20140414
  Serious: No
  Sender: FDA-Public Use
  Company Number: 2012PROUSA02352

PATIENT
  Age: 83 Year
  Sex: Male
  Weight: 86.6 kg

DRUGS (13)
  1. PROVENGE [Suspect]
     Indication: PROSTATE CANCER METASTATIC
     Dosage: SINGLE
     Route: 042
     Dates: start: 20121206, end: 20121206
  2. CARVEDILOL [Concomitant]
  3. COZAAR [Concomitant]
  4. CRESTOR [Concomitant]
  5. ENOXPARIN SODIUM [Concomitant]
  6. HYDROCHLOROTHIAZIDE 1A PHARMA [Concomitant]
  7. LANTUS [Concomitant]
  8. LEVOXYL [Concomitant]
  9. LEVOXYL [Concomitant]
  10. LEXAPRO [Concomitant]
  11. NORVASC [Concomitant]
  12. PREVACID [Concomitant]
  13. ZETIA [Concomitant]

REACTIONS (1)
  - Chills [None]
